FAERS Safety Report 4639220-X (Version None)
Quarter: 2005Q2

REPORT INFORMATION
  Report Type: 
  Country: None (occurrence: None)
  Receive Date: 20050418
  Receipt Date: 20050224
  Transmission Date: 20051028
  Serious: Yes (Hospitalization)
  Sender: FDA-Public Use
  Company Number: 2005VX000250

PATIENT
  Age: 84 Year
  Sex: Female

DRUGS (6)
  1. MESTINON [Suspect]
     Indication: PREOPERATIVE CARE
     Dosage: ORAL
     Route: 048
     Dates: start: 20041215, end: 20041230
  2. OMEPRAZOLE [Suspect]
     Dosage: 1 DF; ORAL
     Route: 048
     Dates: start: 20041215
  3. TRIATEC (RAMIPRIL ) (2.5MG) [Suspect]
     Dosage: 1 DF; ORAL
     Route: 048
     Dates: start: 20041215, end: 20050104
  4. MONO-TILDIEM (DILTIAZEM HYDROCHLORIDE ) (200 MG) [Suspect]
     Dosage: 1 DF; ORAL
     Route: 048
     Dates: start: 20041215, end: 20050104
  5. DEBRIDAT FORT [Concomitant]
  6. LASILIX [Concomitant]

REACTIONS (2)
  - MALAISE [None]
  - RASH [None]
